FAERS Safety Report 10261341 (Version 1)
Quarter: 2014Q2

REPORT INFORMATION
  Report Type: Spontaneous
  Country: FR (occurrence: None)
  Receive Date: 20140623
  Receipt Date: 20140623
  Transmission Date: 20141212
  Serious: Yes (Hospitalization)
  Sender: FDA-Public Use
  Company Number: 2399587

PATIENT
  Age: 24 Year
  Sex: Female

DRUGS (10)
  1. PROPOFOL [Suspect]
     Indication: GENERAL ANAESTHESIA
     Route: 042
  2. SEVOFLURANE [Suspect]
     Indication: MAINTENANCE OF ANAESTHESIA
     Dosage: 2.5 % PERCENT, UNKNOWN, RESPIRATORY
  3. AMOXICILLIN [Concomitant]
  4. ACICLOVIR [Concomitant]
  5. ROCURONIUM BROMIDE [Concomitant]
  6. MIDAZOLAM [Concomitant]
  7. IMMUNOGLOBULIN [Concomitant]
  8. METHYLPREDNISOLONE [Concomitant]
  9. SUFFENTANIL [Concomitant]
  10. ATRACURIUM [Concomitant]

REACTIONS (10)
  - General physical health deterioration [None]
  - Dyskinesia [None]
  - Generalised tonic-clonic seizure [None]
  - Altered state of consciousness [None]
  - Agitation [None]
  - Speech disorder [None]
  - Potentiating drug interaction [None]
  - Encephalitis autoimmune [None]
  - Condition aggravated [None]
  - Anaesthetic complication [None]
